FAERS Safety Report 7722730-6 (Version None)
Quarter: 2011Q3

REPORT INFORMATION
  Report Type: 
  Country: None (occurrence: None)
  Receive Date: 20110831
  Receipt Date: 20110818
  Transmission Date: 20111222
  Serious: No
  Sender: FDA-Public Use
  Company Number: US-B.I. PHARMACEUTICALS,INC./RIDGEFIELD-2011-BP-20247BP

PATIENT
  Age: 68 Year
  Sex: Female

DRUGS (3)
  1. HYZAAR [Concomitant]
     Indication: HYPERTENSION
  2. PRADAXA [Suspect]
     Indication: ATRIAL FIBRILLATION
     Dosage: 300 MG
     Dates: start: 20110101
  3. DILTIAZEM [Concomitant]
     Indication: ATRIAL FIBRILLATION

REACTIONS (2)
  - PAIN IN EXTREMITY [None]
  - JOINT STIFFNESS [None]
